FAERS Safety Report 11199145 (Version 1)
Quarter: 2015Q2

REPORT INFORMATION
  Report Type: Spontaneous
  Country: US (occurrence: US)
  Receive Date: 20150618
  Receipt Date: 20150618
  Transmission Date: 20150821
  Serious: No
  Sender: FDA-Public Use
  Company Number: US-TEVA-532399USA

PATIENT
  Age: 82 Year
  Sex: Female

DRUGS (1)
  1. LAMOTRIGINE. [Suspect]
     Active Substance: LAMOTRIGINE
     Indication: AFFECTIVE DISORDER
     Dosage: 75 MILLIGRAM DAILY;
     Route: 048

REACTIONS (3)
  - Aggression [Unknown]
  - Drug ineffective [Unknown]
  - Wrong technique in drug usage process [Unknown]
